FAERS Safety Report 8599434 (Version 7)
Quarter: 2022Q1

REPORT INFORMATION
  Report Type: Spontaneous
  Country: JP (occurrence: JP)
  Receive Date: 20120605
  Receipt Date: 20220125
  Transmission Date: 20220423
  Serious: Yes (Death, Hospitalization, Other)
  Sender: FDA-Public Use
  Company Number: PHHY2012JP046230

PATIENT
  Age: 66 Year
  Sex: Female
  Weight: 60.5 kg

DRUGS (53)
  1. GLIVEC [Suspect]
     Active Substance: IMATINIB MESYLATE
     Indication: Pulmonary arterial hypertension
     Dosage: 100 MG, DAILY
     Route: 048
     Dates: start: 20081130
  2. GLIVEC [Suspect]
     Active Substance: IMATINIB MESYLATE
     Indication: Systemic scleroderma
     Dosage: 200 MG, DAILY
     Route: 048
     Dates: start: 20091107
  3. GLIVEC [Suspect]
     Active Substance: IMATINIB MESYLATE
     Dosage: 100 MG, DAILY
     Route: 048
     Dates: start: 20091217, end: 20091222
  4. GLIVEC [Suspect]
     Active Substance: IMATINIB MESYLATE
     Dosage: 100 MG, DAILY
     Route: 048
     Dates: start: 20100206, end: 20100320
  5. GLIVEC [Suspect]
     Active Substance: IMATINIB MESYLATE
     Route: 048
     Dates: start: 20081130
  6. GLIVEC [Suspect]
     Active Substance: IMATINIB MESYLATE
     Route: 048
     Dates: start: 20091107
  7. GLIVEC [Suspect]
     Active Substance: IMATINIB MESYLATE
     Route: 048
     Dates: start: 20091217, end: 20091222
  8. GLIVEC [Suspect]
     Active Substance: IMATINIB MESYLATE
     Route: 048
     Dates: start: 20100206, end: 20100320
  9. GLIVEC [Suspect]
     Active Substance: IMATINIB MESYLATE
     Route: 048
     Dates: start: 200902
  10. GLIVEC [Suspect]
     Active Substance: IMATINIB MESYLATE
     Route: 048
     Dates: start: 200905
  11. GLIVEC [Suspect]
     Active Substance: IMATINIB MESYLATE
     Route: 048
     Dates: start: 200911
  12. ASPIRIN [Suspect]
     Active Substance: ASPIRIN
     Indication: Scleroderma
     Dosage: 100 MG, DAILY
     Route: 048
     Dates: start: 20081130, end: 20091228
  13. SARPOGRELATE [Suspect]
     Active Substance: SARPOGRELATE
     Indication: Scleroderma
     Dosage: 300 MG, DAILY
     Route: 048
     Dates: start: 20081130, end: 20091228
  14. BERAPROST SODIUM [Suspect]
     Active Substance: BERAPROST SODIUM
     Indication: Pulmonary arterial hypertension
     Dosage: 120 MG, DAILY
     Route: 048
     Dates: start: 20100201, end: 20100225
  15. OPALMON [Suspect]
     Active Substance: LIMAPROST
     Indication: Scleroderma
     Dosage: 15 MG, DAILY
     Route: 048
     Dates: start: 20081130, end: 20091228
  16. ASPIRIN [Concomitant]
     Active Substance: ASPIRIN
     Indication: Product used for unknown indication
     Dosage: UNK
     Route: 048
  17. SARPOGRELATE HYDROCHLORIDE [Concomitant]
     Active Substance: SARPOGRELATE HYDROCHLORIDE
     Indication: Product used for unknown indication
     Dosage: UNK
     Route: 048
  18. BERAPROST SODIUM [Concomitant]
     Active Substance: BERAPROST SODIUM
     Indication: Peripheral vascular disorder
     Dosage: 120 UG
     Route: 065
     Dates: start: 200703
  19. BERAPROST SODIUM [Concomitant]
     Active Substance: BERAPROST SODIUM
     Dosage: 120 UG
     Route: 065
     Dates: start: 200801
  20. BERAPROST SODIUM [Concomitant]
     Active Substance: BERAPROST SODIUM
     Dosage: 120 UG
     Route: 065
     Dates: start: 200807
  21. BERAPROST SODIUM [Concomitant]
     Active Substance: BERAPROST SODIUM
     Dosage: 120 UG
     Route: 065
     Dates: start: 200811
  22. BERAPROST SODIUM [Concomitant]
     Active Substance: BERAPROST SODIUM
     Dosage: 120 UG
     Route: 065
     Dates: start: 200902
  23. BERAPROST SODIUM [Concomitant]
     Active Substance: BERAPROST SODIUM
     Dosage: 120 UG
     Route: 065
     Dates: start: 200905
  24. BERAPROST SODIUM [Concomitant]
     Active Substance: BERAPROST SODIUM
     Dosage: 120 UG
     Route: 065
     Dates: start: 200911
  25. BERAPROST SODIUM [Concomitant]
     Active Substance: BERAPROST SODIUM
     Dosage: 120 UG
     Route: 065
     Dates: start: 201002
  26. BOSENTAN [Concomitant]
     Active Substance: BOSENTAN
     Indication: Product used for unknown indication
     Dosage: 250 MG
     Route: 065
  27. BOSENTAN [Concomitant]
     Active Substance: BOSENTAN
     Dosage: 125 MG
     Route: 065
     Dates: start: 200801
  28. BOSENTAN [Concomitant]
     Active Substance: BOSENTAN
     Dosage: 125 MG
     Route: 065
     Dates: start: 200807
  29. BOSENTAN [Concomitant]
     Active Substance: BOSENTAN
     Dosage: 250 MG
     Route: 065
     Dates: start: 200811
  30. BOSENTAN [Concomitant]
     Active Substance: BOSENTAN
     Dosage: 250 MG
     Route: 065
     Dates: start: 200902
  31. BOSENTAN [Concomitant]
     Active Substance: BOSENTAN
     Dosage: 250 MG
     Route: 065
     Dates: start: 200905
  32. BOSENTAN [Concomitant]
     Active Substance: BOSENTAN
     Dosage: 250 MG
     Route: 065
     Dates: start: 200911
  33. BOSENTAN [Concomitant]
     Active Substance: BOSENTAN
     Dosage: 250 MG
     Route: 065
     Dates: start: 201002
  34. BOSENTAN [Concomitant]
     Active Substance: BOSENTAN
     Dosage: 125 MG
     Route: 065
  35. SILDENAFIL CITRATE [Concomitant]
     Active Substance: SILDENAFIL CITRATE
     Indication: Product used for unknown indication
     Dosage: 60 MG
     Route: 048
  36. SILDENAFIL CITRATE [Concomitant]
     Active Substance: SILDENAFIL CITRATE
     Dosage: 75 MG
     Route: 065
     Dates: start: 200807
  37. SILDENAFIL CITRATE [Concomitant]
     Active Substance: SILDENAFIL CITRATE
     Dosage: 60 MG
     Route: 065
     Dates: start: 200811
  38. SILDENAFIL CITRATE [Concomitant]
     Active Substance: SILDENAFIL CITRATE
     Dosage: 60 MG
     Route: 065
     Dates: start: 200802
  39. SILDENAFIL CITRATE [Concomitant]
     Active Substance: SILDENAFIL CITRATE
     Dosage: 60 MG
     Route: 065
     Dates: start: 200905
  40. SILDENAFIL CITRATE [Concomitant]
     Active Substance: SILDENAFIL CITRATE
     Dosage: 60 MG
     Route: 065
     Dates: start: 200911
  41. SILDENAFIL CITRATE [Concomitant]
     Active Substance: SILDENAFIL CITRATE
     Dosage: 60 MG
     Route: 065
     Dates: start: 201002
  42. TRACLEER [Concomitant]
     Active Substance: BOSENTAN
     Indication: Pulmonary arterial hypertension
     Dosage: 250 MG
     Route: 048
     Dates: start: 20081130, end: 20100320
  43. REVATIO [Concomitant]
     Active Substance: SILDENAFIL CITRATE
     Indication: Pulmonary arterial hypertension
     Dosage: 60 MG
     Route: 048
     Dates: start: 20081130, end: 20100320
  44. LASIX [Concomitant]
     Active Substance: FUROSEMIDE
     Indication: Right ventricular failure
     Dosage: 60 MG
     Route: 048
     Dates: start: 200811, end: 20100320
  45. SPIRONOLACTONE [Concomitant]
     Active Substance: SPIRONOLACTONE
     Indication: Right ventricular failure
     Dosage: 25 MG
     Route: 048
     Dates: start: 200811, end: 20100320
  46. RABEPRAZOLE SODIUM [Concomitant]
     Active Substance: RABEPRAZOLE SODIUM
     Indication: Prophylaxis against gastrointestinal ulcer
     Dosage: 10 MG
     Route: 048
     Dates: start: 20081130, end: 20100320
  47. PIMOBENDAN [Concomitant]
     Active Substance: PIMOBENDAN
     Indication: Right ventricular failure
     Dosage: 1.25 MG, UNK
     Route: 048
     Dates: start: 20100208, end: 20100320
  48. LEVOTHYROXINE [Concomitant]
     Active Substance: LEVOTHYROXINE
     Indication: Hypothyroidism
     Dosage: 50 MG
     Route: 048
     Dates: start: 20081130, end: 20100320
  49. TOCOPHERYL NICOTINATE, D-.ALPHA. [Concomitant]
     Active Substance: TOCOPHERYL NICOTINATE, D-.ALPHA.
     Indication: Scleroderma
     Dosage: 600 MG
     Route: 048
     Dates: start: 20081130, end: 20100320
  50. MOSAPRIDE CITRATE [Concomitant]
     Active Substance: MOSAPRIDE CITRATE
     Indication: Prophylaxis against gastrointestinal ulcer
     Dosage: 15 MG
     Route: 048
     Dates: start: 20081130, end: 20100320
  51. REBAMIPIDE [Concomitant]
     Active Substance: REBAMIPIDE
     Indication: Prophylaxis against gastrointestinal ulcer
     Dosage: 300 MG
     Route: 048
     Dates: start: 20081130, end: 20100320
  52. CINAL [Concomitant]
     Indication: Scleroderma
     Dosage: 6 DOSAGE FORM
     Route: 048
     Dates: start: 20081130, end: 20100320
  53. EPOPROSTENOL [Concomitant]
     Active Substance: EPOPROSTENOL
     Indication: Product used for unknown indication
     Dosage: UNK
     Route: 065

REACTIONS (18)
  - Subdural haematoma [Fatal]
  - Loss of consciousness [Fatal]
  - Paresis [Fatal]
  - Subdural haemorrhage [Fatal]
  - Depressed level of consciousness [Fatal]
  - Gait disturbance [Fatal]
  - Tremor [Fatal]
  - Headache [Fatal]
  - Presyncope [Fatal]
  - Right ventricular failure [Unknown]
  - Concomitant disease aggravated [Unknown]
  - Contusion [Unknown]
  - Head injury [Unknown]
  - Subdural haematoma [Unknown]
  - Renal impairment [Unknown]
  - Pulmonary hypertension [Unknown]
  - Fall [Unknown]
  - Oedema peripheral [Not Recovered/Not Resolved]

NARRATIVE: CASE EVENT DATE: 20081201
